FAERS Safety Report 14865789 (Version 1)
Quarter: 2018Q2

REPORT INFORMATION
  Report Type: Spontaneous
  Country: JP (occurrence: JP)
  Receive Date: 20180508
  Receipt Date: 20180508
  Transmission Date: 20180711
  Serious: Yes (Other)
  Sender: FDA-Public Use
  Company Number: JP-BAUSCH-BL-2018-012734

PATIENT
  Age: 80 Year
  Sex: Female

DRUGS (3)
  1. AMPICILLIN/SULBACTAM [Concomitant]
     Active Substance: AMPICILLIN SODIUM\SULBACTAM SODIUM
     Indication: APPENDICITIS
  2. METRONIDAZOLE. [Suspect]
     Active Substance: METRONIDAZOLE
     Indication: APPENDICITIS
     Route: 065
  3. CRAVIT [Suspect]
     Active Substance: LEVOFLOXACIN
     Indication: APPENDICITIS
     Route: 065

REACTIONS (1)
  - Toxic encephalopathy [Unknown]
